FAERS Safety Report 4497715-6 (Version None)
Quarter: 2004Q4

REPORT INFORMATION
  Report Type: 
  Country: None (occurrence: None)
  Receive Date: 20041104
  Receipt Date: 20041020
  Transmission Date: 20050328
  Serious: Yes (Hospitalization)
  Sender: FDA-Public Use
  Company Number: JP-JNJFOC-20040506905

PATIENT
  Sex: Female
  Weight: 50.7 kg

DRUGS (27)
  1. REMICADE [Suspect]
     Route: 041
     Dates: start: 20040301
  2. REMICADE [Suspect]
     Route: 041
     Dates: start: 20040301
  3. REMICADE [Suspect]
     Indication: RHEUMATOID ARTHRITIS
     Route: 041
     Dates: start: 20040301
  4. PREDONINE [Suspect]
     Route: 049
  5. PREDONINE [Suspect]
     Indication: RHEUMATOID ARTHRITIS
     Route: 049
  6. IMURAN [Suspect]
     Indication: RHEUMATOID ARTHRITIS
     Route: 049
  7. METHOTREXATE [Concomitant]
     Indication: RHEUMATOID ARTHRITIS
     Route: 049
     Dates: start: 20040109
  8. VOLTAREN [Concomitant]
     Indication: RHEUMATOID ARTHRITIS
     Route: 049
  9. HYPEN [Concomitant]
     Indication: RHEUMATOID ARTHRITIS
     Route: 049
  10. LANSOPRAZOLE [Concomitant]
     Route: 049
  11. GASTRON [Concomitant]
     Route: 049
  12. GASTRON [Concomitant]
     Route: 049
  13. GASTRON [Concomitant]
     Route: 049
  14. GASTRON [Concomitant]
     Indication: GASTRITIS
     Route: 049
  15. AMLODIN [Concomitant]
     Route: 049
  16. CALCIUM LACTATE [Concomitant]
     Indication: OSTEOPOROSIS
     Route: 049
  17. GLAKAY [Concomitant]
     Indication: OSTEOPOROSIS
     Route: 049
  18. ONEALFA [Concomitant]
     Indication: OSTEOPOROSIS
     Route: 049
  19. EPADEL S [Concomitant]
     Route: 049
  20. ACTONEL [Concomitant]
     Indication: OSTEOPOROSIS
     Route: 049
  21. FERROMIA [Concomitant]
     Route: 049
  22. ADOFEED [Concomitant]
     Indication: RHEUMATOID ARTHRITIS
  23. BAYASPIRIN [Concomitant]
     Route: 049
  24. UREPARL LOTION [Concomitant]
  25. FLORIDO GEL [Concomitant]
  26. ULCERLMIN [Concomitant]
     Route: 049
  27. PROMPERAN [Concomitant]
     Route: 049

REACTIONS (5)
  - CYTOMEGALOVIRUS INFECTION [None]
  - DRUG INTERACTION [None]
  - MYCOPLASMA INFECTION [None]
  - PNEUMOCYSTIS CARINII PNEUMONIA [None]
  - RESPIRATORY FAILURE [None]
